FAERS Safety Report 8530255 (Version 7)
Quarter: 2012Q4

REPORT INFORMATION
  Report Type: Report from Study
  Country: PR (occurrence: PR)
  Receive Date: 20120425
  Receipt Date: 20121019
  Transmission Date: 20130627
  Serious: Yes (Other)
  Sender: FDA-Public Use
  Company Number: PR-ABBOTT-12P-131-0926526-00

PATIENT
  Age: 35 Year
  Sex: Female
  Weight: 47.67 kg

DRUGS (5)
  1. HUMIRA 40 MG/0.8 ML PEN [Suspect]
     Indication: RHEUMATOID ARTHRITIS
     Route: 058
     Dates: start: 201201, end: 20120726
  2. HUMIRA 40 MG/0.8 ML PEN [Suspect]
     Dates: start: 20120816
  3. HUMIRA 40 MG/0.8 ML PEN [Suspect]
     Dosage: Every 15 days
     Route: 058
     Dates: end: 20121006
  4. PLAQUENIL [Concomitant]
     Indication: RHEUMATOID ARTHRITIS
     Dosage: 300mg daily, 1.5 tablets daily
     Route: 048
     Dates: start: 2004, end: 20120726
  5. PLAQUENIL [Concomitant]
     Indication: RHEUMATOID ARTHRITIS
     Dosage: 1.5 tablets daily
     Route: 048
     Dates: start: 20120816

REACTIONS (8)
  - Proteinuria [Recovered/Resolved]
  - White blood cell count increased [Recovered/Resolved]
  - White blood cell count increased [Recovered/Resolved]
  - White blood cell count increased [Recovered/Resolved]
  - Cartilage injury [Recovering/Resolving]
  - Cough [Not Recovered/Not Resolved]
  - Respiratory tract congestion [Not Recovered/Not Resolved]
  - Injection site rash [Recovering/Resolving]
